FAERS Safety Report 7403196-2 (Version None)
Quarter: 2011Q2

REPORT INFORMATION
  Report Type: 
  Country: None (occurrence: None)
  Receive Date: 20110408
  Receipt Date: 20110405
  Transmission Date: 20111010
  Serious: Yes (Death, Other)
  Sender: FDA-Public Use
  Company Number: US-AMGEN-USASP2011016753

PATIENT
  Age: 53 Year
  Sex: Male

DRUGS (1)
  1. NPLATE [Suspect]
     Indication: IDIOPATHIC THROMBOCYTOPENIC PURPURA
     Dosage: 500 A?G, QWK
     Dates: start: 20101213, end: 20110203

REACTIONS (7)
  - SEPSIS [None]
  - RESPIRATORY FAILURE [None]
  - DRUG INEFFECTIVE [None]
  - THERAPEUTIC RESPONSE DECREASED [None]
  - PNEUMONIA [None]
  - BONE MARROW FAILURE [None]
  - ORGAN FAILURE [None]
